FAERS Safety Report 5268909-7 (Version None)
Quarter: 2007Q1

REPORT INFORMATION
  Report Type: 
  Country: None (occurrence: None)
  Receive Date: 20061212
  Receipt Date: 20041122
  Transmission Date: 20070707
  Serious: Yes (Hospitalization)
  Sender: FDA-Public Use
  Company Number: 2004UW24178

PATIENT

DRUGS (2)
  1. CASODEX [Suspect]
  2. FLU VACCINE [Concomitant]

REACTIONS (1)
  - ABDOMINAL PAIN UPPER [None]
